FAERS Safety Report 11415003 (Version 1)
Quarter: 2015Q3

REPORT INFORMATION
  Report Type: Spontaneous
  Country: GB (occurrence: GB)
  Receive Date: 20150825
  Receipt Date: 20150825
  Transmission Date: 20151125
  Serious: Yes (Hospitalization, Disabling)
  Sender: FDA-Public Use
  Company Number: GB-ACCORD-033136

PATIENT
  Age: 88 Year
  Sex: Male

DRUGS (7)
  1. TAMSULOSIN [Concomitant]
     Active Substance: TAMSULOSIN
  2. ATENOLOL/ATENOLOL HYDROCHLORIDE [Suspect]
     Active Substance: ATENOLOL
     Indication: PRODUCT USED FOR UNKNOWN INDICATION
     Route: 048
     Dates: end: 20150731
  3. DONEPEZIL/DONEPEZIL HYDROCHLORIDE [Suspect]
     Active Substance: DONEPEZIL HYDROCHLORIDE
     Indication: DEMENTIA
     Route: 048
     Dates: end: 20150731
  4. SIMVASTATIN. [Concomitant]
     Active Substance: SIMVASTATIN
     Dosage: AT NIGHT.
  5. ACCRETE D3 [Concomitant]
  6. ACETYLSALICYLIC ACID/CALCIUM CARBONATE/CITRIC ACID [Concomitant]
     Dosage: IN THE MORNING.
  7. FINASTERIDE. [Concomitant]
     Active Substance: FINASTERIDE

REACTIONS (1)
  - Circulatory collapse [Recovering/Resolving]

NARRATIVE: CASE EVENT DATE: 20150730
